FAERS Safety Report 7418631-3 (Version None)
Quarter: 2011Q2

REPORT INFORMATION
  Report Type: 
  Country: None (occurrence: None)
  Receive Date: 20110415
  Receipt Date: 20101210
  Transmission Date: 20111010
  Serious: Yes (Hospitalization, Other)
  Sender: FDA-Public Use
  Company Number: US-BAYER-201041584NA

PATIENT
  Age: 26 Year
  Sex: Female
  Weight: 42 kg

DRUGS (22)
  1. YASMIN [Suspect]
     Indication: ACNE
  2. YASMIN [Suspect]
     Indication: UNEVALUABLE EVENT
  3. COLAZAL [Concomitant]
     Indication: COLITIS ULCERATIVE
     Dosage: MUSCLE PAIN/SPASMS
     Dates: start: 20000101, end: 20010101
  4. POTASSIUM [Concomitant]
     Dates: start: 20000101
  5. ALEVE [Concomitant]
     Dates: start: 20000101
  6. ROBINUL [Concomitant]
     Indication: MUSCLE SPASMS
  7. PREDNISONE [Concomitant]
     Indication: INFLAMMATION
     Dates: start: 20000101, end: 20010101
  8. BENTYL [Concomitant]
  9. ASACOL [Concomitant]
     Indication: COLITIS ULCERATIVE
     Dates: start: 20010101
  10. FLEXERIL [Concomitant]
     Indication: MUSCLE SPASMS
     Dates: start: 19900101, end: 19930101
  11. BENTYL [Concomitant]
     Indication: COLITIS ULCERATIVE
     Dates: start: 20000101
  12. ROBINUL [Concomitant]
     Indication: ABDOMINAL PAIN
     Dates: start: 20010101, end: 20030101
  13. CLARITIN [Concomitant]
     Indication: MULTIPLE ALLERGIES
     Dosage: 1 DF QD
     Dates: start: 19960101
  14. IMITREX [Concomitant]
     Dates: start: 20010101
  15. LEVSIN [Concomitant]
     Dates: start: 20010101
  16. PROVENTIL [Concomitant]
  17. YASMIN [Suspect]
     Indication: CONTRACEPTION
     Route: 048
     Dates: start: 20000101, end: 20030101
  18. FLEXERIL [Concomitant]
     Indication: MYALGIA
     Dates: start: 20030101
  19. PROVENTIL-HFA [Concomitant]
     Indication: ASTHMA
     Dates: start: 20000101
  20. PHENERGAN HCL [Concomitant]
     Indication: NAUSEA
     Dates: start: 20000101
  21. LIBRAX [Concomitant]
     Dosage: UNK UNK, PRN
  22. PHENERGAN HCL [Concomitant]
     Dosage: 25 MG, PRN

REACTIONS (10)
  - BILIARY COLIC [None]
  - PAIN [None]
  - PANCREATITIS CHRONIC [None]
  - NAUSEA [None]
  - BACK PAIN [None]
  - GALLBLADDER DISORDER [None]
  - VOMITING [None]
  - PYREXIA [None]
  - ABDOMINAL PAIN UPPER [None]
  - ABDOMINAL PAIN LOWER [None]
